FAERS Safety Report 7060915-5 (Version None)
Quarter: 2010Q4

REPORT INFORMATION
  Report Type: 
  Country: None (occurrence: None)
  Receive Date: 20101025
  Receipt Date: 20101018
  Transmission Date: 20110411
  Serious: Yes (Hospitalization)
  Sender: FDA-Public Use
  Company Number: US-B.I. PHARMACEUTICALS,INC./RIDGEFIELD-2010-BP-11675BP

PATIENT
  Sex: Male

DRUGS (1)
  1. MIRAPEX [Suspect]
     Indication: PARKINSON'S DISEASE
     Route: 048
     Dates: start: 19970101, end: 20091001

REACTIONS (11)
  - ANXIETY [None]
  - DIARRHOEA [None]
  - DIZZINESS [None]
  - DYSPNOEA [None]
  - EUPHORIC MOOD [None]
  - FEELING ABNORMAL [None]
  - HYPOGLYCAEMIA [None]
  - LOSS OF EMPLOYMENT [None]
  - OBSESSIVE-COMPULSIVE DISORDER [None]
  - SWELLING FACE [None]
  - WEIGHT INCREASED [None]
